FAERS Safety Report 21763115 (Version 1)
Quarter: 2022Q4

REPORT INFORMATION
  Report Type: Spontaneous
  Country: CN (occurrence: CN)
  Receive Date: 20221221
  Receipt Date: 20221221
  Transmission Date: 20230113
  Serious: Yes (Other)
  Sender: FDA-Public Use
  Company Number: CN-PFIZER INC-PV202200126510

PATIENT
  Age: 63 Year
  Sex: Male

DRUGS (6)
  1. EPIRUBICIN [Suspect]
     Active Substance: EPIRUBICIN
     Indication: Hepatic cancer
     Dosage: 20 MG, 1X/DAY
     Route: 013
     Dates: start: 20221013, end: 20221013
  2. EPIRUBICIN [Suspect]
     Active Substance: EPIRUBICIN
     Indication: Abdominal pain
  3. RALTITREXED [Suspect]
     Active Substance: RALTITREXED
     Indication: Hepatic cancer
     Dosage: 4 MG, 1X/DAY
     Route: 013
     Dates: start: 20221013, end: 20221013
  4. RALTITREXED [Suspect]
     Active Substance: RALTITREXED
     Indication: Abdominal pain
  5. OXALIPLATIN [Suspect]
     Active Substance: OXALIPLATIN
     Indication: Hepatic cancer
     Dosage: 100 MG, 1X/DAY
     Route: 013
     Dates: start: 20221013, end: 20221013
  6. OXALIPLATIN [Suspect]
     Active Substance: OXALIPLATIN
     Indication: Abdominal pain

REACTIONS (1)
  - Drug-induced liver injury [Recovering/Resolving]

NARRATIVE: CASE EVENT DATE: 20221016
